FAERS Safety Report 4377283-X (Version None)
Quarter: 2004Q2

REPORT INFORMATION
  Report Type: 
  Country: None (occurrence: None)
  Receive Date: 20040614
  Receipt Date: 20040614
  Transmission Date: 20050107
  Serious: Yes (Hospitalization)
  Sender: FDA-Public Use
  Company Number: None

PATIENT
  Age: 83 Year
  Sex: Male
  Weight: 70.7 kg

DRUGS (2)
  1. HEPARIN [Suspect]
     Indication: ATRIAL FIBRILLATION
     Dosage: IV INFUSI
     Route: 042
     Dates: start: 20040602, end: 20040609
  2. HEPARIN [Suspect]
     Indication: EMBOLISM
     Dosage: IV INFUSI
     Route: 042
     Dates: start: 20040602, end: 20040609

REACTIONS (1)
  - HEPARIN-INDUCED THROMBOCYTOPENIA [None]
